FAERS Safety Report 24632470 (Version 1)
Quarter: 2024Q4

REPORT INFORMATION
  Report Type: Spontaneous
  Country: GB (occurrence: GB)
  Receive Date: 20241118
  Receipt Date: 20241118
  Transmission Date: 20250115
  Serious: Yes (Disabling, Other)
  Sender: ELI LILLY AND COMPANY
  Company Number: None

PATIENT
  Age: 48 Year
  Sex: Female
  Weight: 87 kg

DRUGS (1)
  1. MOUNJARO [Suspect]
     Active Substance: TIRZEPATIDE
     Indication: Weight control
     Dosage: 2.4ML ONCE WEEK
     Route: 065
     Dates: start: 20240930, end: 20241101

REACTIONS (6)
  - Asthenopia [Recovering/Resolving]
  - Palpitations [Recovering/Resolving]
  - Brain fog [Recovering/Resolving]
  - Lethargy [Recovering/Resolving]
  - Dizziness [Recovering/Resolving]
  - Dyspepsia [Recovering/Resolving]

NARRATIVE: CASE EVENT DATE: 20240930
